FAERS Safety Report 10471625 (Version 2)
Quarter: 2014Q4

REPORT INFORMATION
  Report Type: Report from Study
  Country: US (occurrence: US)
  Receive Date: 20140923
  Receipt Date: 20141014
  Transmission Date: 20150528
  Serious: Yes (Other)
  Sender: FDA-Public Use
  Company Number: PHEH2014US018743

PATIENT
  Sex: Male

DRUGS (2)
  1. EXELON PATCH [Suspect]
     Active Substance: RIVASTIGMINE
     Indication: DEMENTIA
     Dosage: 9.5 MG, ONCE DAILY
     Route: 062
  2. ARCAPTA NEOHALER [Suspect]
     Active Substance: INDACATEROL MALEATE
     Indication: CHRONIC OBSTRUCTIVE PULMONARY DISEASE
     Dosage: 75 UG, ONCE DAILY
     Route: 055

REACTIONS (5)
  - Abnormal behaviour [Unknown]
  - Fibromyalgia [Unknown]
  - Dementia [Unknown]
  - Visual impairment [Unknown]
  - Memory impairment [Unknown]
